FAERS Safety Report 8343750-7 (Version None)
Quarter: 2012Q2

REPORT INFORMATION
  Report Type: 
  Country: None (occurrence: None)
  Receive Date: 20120508
  Receipt Date: 20120508
  Transmission Date: 20120825
  Serious: No
  Sender: FDA-Public Use
  Company Number: None

PATIENT
  Age: 62 Year
  Sex: Female
  Weight: 70.306 kg

DRUGS (1)
  1. RECLAST [Suspect]
     Indication: OSTEOPENIA
     Dosage: UNKNOWN
     Route: 013
     Dates: start: 20101001, end: 20101001

REACTIONS (4)
  - PYREXIA [None]
  - BONE PAIN [None]
  - INFLUENZA LIKE ILLNESS [None]
  - OSTEOPOROSIS [None]
